FAERS Safety Report 15255175 (Version 1)
Quarter: 2018Q3

REPORT INFORMATION
  Report Type: Spontaneous
  Country: US (occurrence: US)
  Receive Date: 20180808
  Receipt Date: 20180808
  Transmission Date: 20181010
  Serious: No
  Sender: FDA-Public Use
  Company Number: US-SHIRE-US201830521

PATIENT
  Age: 78 Year
  Sex: Female

DRUGS (1)
  1. XIIDRA [Suspect]
     Active Substance: LIFITEGRAST
     Indication: PRODUCT USED FOR UNKNOWN INDICATION
     Dosage: UNK
     Route: 047
     Dates: start: 20180802, end: 20180803

REACTIONS (3)
  - Vision blurred [Recovered/Resolved]
  - Instillation site pain [Recovered/Resolved]
  - Instillation site reaction [Unknown]

NARRATIVE: CASE EVENT DATE: 20180802
